FAERS Safety Report 11280101 (Version 1)
Quarter: 2015Q3

REPORT INFORMATION
  Report Type: Spontaneous
  Country: GB (occurrence: GB)
  Receive Date: 20150717
  Receipt Date: 20150717
  Transmission Date: 20151125
  Serious: Yes (Other)
  Sender: FDA-Public Use
  Company Number: GB-TEVA-577892ACC

PATIENT
  Age: 42 Year
  Sex: Female
  Weight: 50.34 kg

DRUGS (2)
  1. ASPIRIN COATED [Concomitant]
  2. BISOPROLOL [Suspect]
     Active Substance: BISOPROLOL
     Indication: MITRAL VALVE REPAIR
     Dosage: 2.5 MILLIGRAM DAILY;
     Route: 048
     Dates: start: 20150504, end: 20150520

REACTIONS (7)
  - Rhinorrhoea [Recovering/Resolving]
  - Arthralgia [Recovered/Resolved]
  - Fatigue [Not Recovered/Not Resolved]
  - Dizziness [Recovered/Resolved]
  - Muscular weakness [Recovered/Resolved]
  - Hallucination, visual [Recovered/Resolved]
  - Scintillating scotoma [Not Recovered/Not Resolved]

NARRATIVE: CASE EVENT DATE: 20150504
